FAERS Safety Report 11281092 (Version 3)
Quarter: 2015Q4

REPORT INFORMATION
  Report Type: Report from Study
  Country: DE (occurrence: DE)
  Receive Date: 20150717
  Receipt Date: 20151016
  Transmission Date: 20160304
  Serious: Yes (Death, Other)
  Sender: FDA-Public Use
  Company Number: DE-GILEAD-2015-0163605

PATIENT
  Age: 58 Year
  Sex: Male
  Weight: 80 kg

DRUGS (8)
  1. RISPERIDON [Concomitant]
     Active Substance: RISPERIDONE
  2. TRIMIPRAMINE [Concomitant]
     Active Substance: TRIMIPRAMINE
  3. LEDIPASVIR/SOFOSBUVIR [Suspect]
     Active Substance: LEDIPASVIR\SOFOSBUVIR
     Indication: CHRONIC HEPATITIS C
     Dosage: 90 MG, QD
     Route: 048
     Dates: start: 20141210, end: 20150312
  4. RAMIPRIL. [Concomitant]
     Active Substance: RAMIPRIL
  5. MCP STADA [Concomitant]
     Dosage: UNK
     Dates: start: 20150225
  6. QUETIAPINE [Concomitant]
     Active Substance: QUETIAPINE
  7. AMLODIPIN                          /00972401/ [Concomitant]
     Active Substance: AMLODIPINE BESYLATE
  8. METFORMIN [Concomitant]
     Active Substance: METFORMIN HYDROCHLORIDE

REACTIONS (2)
  - Hepatic failure [Fatal]
  - Hepatocellular carcinoma [Fatal]

NARRATIVE: CASE EVENT DATE: 20150406
